FAERS Safety Report 25548518 (Version 2)
Quarter: 2025Q3

REPORT INFORMATION
  Report Type: Other
  Country: US (occurrence: US)
  Receive Date: 20250714
  Receipt Date: 20250921
  Transmission Date: 20251021
  Serious: No
  Sender: TRAVERE THERAPEUTICS
  Company Number: US-TRAVERE-2025TVT01066

PATIENT
  Age: 55 Year
  Sex: Female

DRUGS (3)
  1. FILSPARI [Suspect]
     Active Substance: SPARSENTAN
     Indication: IgA nephropathy
     Route: 048
  2. FILSPARI [Suspect]
     Active Substance: SPARSENTAN
     Indication: Haematuria
  3. FILSPARI [Suspect]
     Active Substance: SPARSENTAN
     Indication: Proteinuria

REACTIONS (3)
  - Nasopharyngitis [Unknown]
  - Aphonia [Unknown]
  - Pruritus [Recovering/Resolving]
